FAERS Safety Report 9170724 (Version 1)
Quarter: 2013Q1

REPORT INFORMATION
  Report Type: Spontaneous
  Country: US (occurrence: None)
  Receive Date: 20130311
  Receipt Date: 20130311
  Transmission Date: 20140127
  Serious: Yes (Other)
  Sender: FDA-Public Use
  Company Number: B0873139A

PATIENT
  Age: 3 Year
  Sex: 0

DRUGS (3)
  1. MELPHALAN (FORMULATION UNKNOWN) (GENERIC) (MELPHALAN) [Suspect]
     Indication: BONE MARROW TRANSPLANT
  2. FLUDARABINE PHOSPHATE (FORMULATION UNKNOWN) (FLUDARABINE PHOSPHATE) [Suspect]
     Indication: BONE MARROW TRANSPLANT
  3. ALEMTUZUMAB (FORMULATION UNKNOWN) (ALEMTUZUMAB) [Suspect]
     Indication: BONE MARROW TRANSPLANT

REACTIONS (3)
  - Cytomegalovirus viraemia [None]
  - Epstein-Barr virus infection [None]
  - Bone marrow transplant [None]
